FAERS Safety Report 24954630 (Version 1)
Quarter: 2025Q1

REPORT INFORMATION
  Report Type: Spontaneous
  Country: US (occurrence: None)
  Receive Date: 20250210
  Receipt Date: 20250210
  Transmission Date: 20250408
  Serious: Yes (Death)
  Sender: FDA-CTU
  Company Number: None

PATIENT
  Age: 57 Year

DRUGS (1)
  1. TACROLIMUS [Suspect]
     Active Substance: TACROLIMUS

REACTIONS (5)
  - Metabolic acidosis [None]
  - Anaemia [None]
  - Hypotension [None]
  - Arrhythmia [None]
  - Hyperkalaemia [None]

NARRATIVE: CASE EVENT DATE: 20241227
